FAERS Safety Report 10233235 (Version 4)
Quarter: 2025Q1

REPORT INFORMATION
  Report Type: Report from Study
  Country: CA (occurrence: CA)
  Receive Date: 20140612
  Receipt Date: 20250107
  Transmission Date: 20250409
  Serious: Yes (Death, Life-Threatening, Other)
  Sender: MERCK
  Company Number: CA-009507513-1406CAN004402

PATIENT

DRUGS (2)
  1. TEMODAL [Suspect]
     Active Substance: TEMOZOLOMIDE
     Indication: Glioblastoma
     Route: 048
  2. BEVACIZUMAB [Suspect]
     Active Substance: BEVACIZUMAB
     Indication: Glioblastoma
     Route: 065

REACTIONS (1)
  - Cerebrovascular accident [Fatal]
